FAERS Safety Report 8018787-8 (Version None)
Quarter: 2012Q1

REPORT INFORMATION
  Report Type: 
  Country: None (occurrence: None)
  Receive Date: 20120103
  Receipt Date: 20111219
  Transmission Date: 20120608
  Serious: Yes (Death)
  Sender: FDA-Public Use
  Company Number: US-PFIZER INC-2011313855

PATIENT
  Age: 35 Year
  Sex: Male

DRUGS (7)
  1. PROPOXYPHENE HYDROCHLORIDE [Suspect]
  2. ACETAMINOPHEN [Suspect]
  3. DIAZEPAM [Suspect]
  4. DIPHENHYDRAMINE HCL [Suspect]
  5. OXYCODONE HCL [Suspect]
  6. ETHANOL [Suspect]
  7. HYDROCODONE [Suspect]

REACTIONS (5)
  - CARDIAC ARREST [None]
  - RESPIRATORY ARREST [None]
  - ASPIRATION [None]
  - COMPLETED SUICIDE [None]
  - TOXICITY TO VARIOUS AGENTS [None]
